FAERS Safety Report 17262797 (Version 1)
Quarter: 2020Q1

REPORT INFORMATION
  Report Type: Spontaneous
  Country: US (occurrence: US)
  Receive Date: 20200110
  Receipt Date: 20200110
  Transmission Date: 20200409
  Serious: No
  Sender: FDA-Public Use
  Company Number: None

PATIENT
  Age: 26 Year
  Sex: Female
  Weight: 49.5 kg

DRUGS (2)
  1. AIMOVIG [Suspect]
     Active Substance: ERENUMAB-AOOE
     Indication: MIGRAINE
     Dosage: ?          QUANTITY:1 INJECTION(S);OTHER FREQUENCY:1 PER MONTH;OTHER ROUTE:INJECTION TO STOMACH?
     Dates: start: 20191001
  2. ELETRIPTAN. [Concomitant]
     Active Substance: ELETRIPTAN

REACTIONS (2)
  - Peripheral coldness [None]
  - Therapy change [None]

NARRATIVE: CASE EVENT DATE: 20200110
